FAERS Safety Report 21556850 (Version 1)
Quarter: 2022Q4

REPORT INFORMATION
  Report Type: Spontaneous
  Country: CH (occurrence: None)
  Receive Date: 20221104
  Receipt Date: 20221104
  Transmission Date: 20230112
  Serious: Yes (Other)
  Sender: FDA-Public Use
  Company Number: CH-ROCHE-3193907

PATIENT
  Age: 73 Year
  Sex: Female
  Weight: 77 kg

DRUGS (8)
  1. ACTEMRA [Suspect]
     Active Substance: TOCILIZUMAB
     Indication: Rheumatoid arthritis
     Route: 065
  2. MABTHERA [Suspect]
     Active Substance: RITUXIMAB
     Indication: Product used for unknown indication
     Route: 065
  3. ACTEMRA [Suspect]
     Active Substance: TOCILIZUMAB
     Indication: Antiphospholipid syndrome
     Route: 058
     Dates: start: 202007, end: 20200727
  4. ENBREL [Concomitant]
     Active Substance: ETANERCEPT
  5. HUMIRA [Concomitant]
     Active Substance: ADALIMUMAB
  6. OLUMIANT [Concomitant]
     Active Substance: BARICITINIB
  7. RINVOQ [Concomitant]
     Active Substance: UPADACITINIB
  8. SINTROM [Concomitant]
     Active Substance: ACENOCOUMAROL
     Indication: Antiphospholipid syndrome
     Dosage: VARIABLE, ACCORDING TO INR
     Route: 048

REACTIONS (3)
  - Mouth ulceration [Recovered/Resolved]
  - Bicytopenia [Recovered/Resolved]
  - Drug intolerance [Unknown]

NARRATIVE: CASE EVENT DATE: 20200701
